FAERS Safety Report 14844522 (Version 1)
Quarter: 2018Q2

REPORT INFORMATION
  Report Type: Spontaneous
  Country: DE (occurrence: DE)
  Receive Date: 20180503
  Receipt Date: 20180503
  Transmission Date: 20180711
  Serious: Yes (Other)
  Sender: FDA-Public Use
  Company Number: PHHY2009DE075264

PATIENT
  Age: 38 Year
  Sex: Male

DRUGS (5)
  1. VALDOXAN [Suspect]
     Active Substance: AGOMELATINE
     Indication: PRODUCT USED FOR UNKNOWN INDICATION
     Dosage: 1 DF, UNK;(1 UG/LITRE) STRENGTH 25MG  FORM = TABS  1 DOSAGEFORM = 20 TABS
     Route: 065
  2. ABILIFY [Suspect]
     Active Substance: ARIPIPRAZOLE
     Indication: PRODUCT USED FOR UNKNOWN INDICATION
     Dosage: 1 DF, UNK, (1 UG/LITRE)1 DOSAGEFORM = 8 TO 10 TABS
     Route: 048
     Dates: start: 20090625, end: 20090625
  3. FLUOXETINE HYDROCHLORIDE. [Suspect]
     Active Substance: FLUOXETINE HYDROCHLORIDE
     Indication: PRODUCT USED FOR UNKNOWN INDICATION
     Dosage: 1 DF, UNK; (1 UG/LITRE) STRENGTH 20MG  FORM = TABS  1 DOSAGEFORM = 8-10 TABS
     Route: 065
  4. VENLAFAXINE XR [Suspect]
     Active Substance: VENLAFAXINE HYDROCHLORIDE
     Indication: PRODUCT USED FOR UNKNOWN INDICATION
     Dosage: 15 DF, UNK; (15 UG/LITRE)15 DOSAGEFORM = 15 TABS
     Route: 065
  5. PALIPERIDONE. [Suspect]
     Active Substance: PALIPERIDONE
     Indication: PRODUCT USED FOR UNKNOWN INDICATION
     Dosage: 15 DF, UNK;(15 UG/LITRE) 15 DOSAGEFORM = 15 TABS  FORM = RETARD TABS  STRENGTH = 3MG
     Route: 065

REACTIONS (2)
  - Suicide attempt [Recovered/Resolved]
  - Intentional overdose [Unknown]

NARRATIVE: CASE EVENT DATE: 20090625
